FAERS Safety Report 4492918-9 (Version None)
Quarter: 2004Q4

REPORT INFORMATION
  Report Type: 
  Country: None (occurrence: None)
  Receive Date: 20041029
  Receipt Date: 20041021
  Transmission Date: 20050328
  Serious: Yes (Hospitalization)
  Sender: FDA-Public Use
  Company Number: 2004PK01754

PATIENT
  Age: 49 Year
  Sex: Male

DRUGS (3)
  1. BELOC ZOK [Suspect]
     Dosage: 50 MG DAILY PO
     Route: 048
     Dates: end: 20040919
  2. BELOC ZOK [Suspect]
     Dates: start: 20040901
  3. INHIBACE [Concomitant]

REACTIONS (6)
  - ARRHYTHMIA [None]
  - ASTHENIA [None]
  - BLOOD PRESSURE INCREASED [None]
  - BRADYCARDIA [None]
  - PAIN IN EXTREMITY [None]
  - VENTRICULAR HYPERTROPHY [None]
